FAERS Safety Report 7806076-3 (Version None)
Quarter: 2011Q4

REPORT INFORMATION
  Report Type: 
  Country: None (occurrence: None)
  Receive Date: 20111011
  Receipt Date: 20111010
  Transmission Date: 20120403
  Serious: Yes (Death)
  Sender: FDA-Public Use
  Company Number: DE-B.I. PHARMACEUTICALS,INC./RIDGEFIELD-2011-DE-05176DE

PATIENT
  Sex: Male
  Weight: 100 kg

DRUGS (3)
  1. SYMBICORT [Concomitant]
     Dosage: 2 ANZ
  2. ENALAPRIL MALEATE [Concomitant]
     Dosage: 30 MG
  3. SPIRIVA [Suspect]

REACTIONS (1)
  - CARDIAC FAILURE [None]
